FAERS Safety Report 9924907 (Version 1)
Quarter: 2014Q1

REPORT INFORMATION
  Report Type: Spontaneous
  Country: US (occurrence: None)
  Receive Date: 20140224
  Receipt Date: 20140224
  Transmission Date: 20141002
  Serious: No
  Sender: FDA-Public Use
  Company Number: None

PATIENT
  Age: 61 Year
  Sex: Female

DRUGS (2)
  1. SUTENT [Suspect]
     Route: 048
     Dates: start: 201307, end: 20131227
  2. SUTENT [Suspect]
     Indication: RENAL CANCER
     Route: 048
     Dates: start: 201307, end: 20131227

REACTIONS (1)
  - Palmar-plantar erythrodysaesthesia syndrome [None]
